FAERS Safety Report 8529890-8 (Version None)
Quarter: 2012Q3

REPORT INFORMATION
  Report Type: 
  Country: None (occurrence: None)
  Receive Date: 20120723
  Receipt Date: 20120710
  Transmission Date: 20120928
  Serious: Yes (Hospitalization)
  Sender: FDA-Public Use
  Company Number: US-009507513-1207USA002270

PATIENT

DRUGS (9)
  1. OMEGA-3 MARINE TRIGLYCERIDES [Concomitant]
     Dosage: UNK
  2. RIBAVIRIN [Concomitant]
     Dosage: 200 MG, UNK
  3. PEGASYS [Concomitant]
     Dosage: 180 MICROGRAM, QM
  4. SYNTHROID [Concomitant]
     Dosage: 25 MICROGRAM, UNK
  5. VICTRELIS [Suspect]
     Indication: HEPATITIS C
     Dosage: 800 MG, Q8H
  6. ASCORBIC ACID [Concomitant]
     Dosage: 250 MG, UNK
  7. METAMUCIL-2 [Concomitant]
  8. NIACIN [Concomitant]
     Dosage: 125 MG, UNK
  9. VITAMIN D (UNSPECIFIED) [Concomitant]
     Dosage: 1 DF, QD

REACTIONS (2)
  - PNEUMONIA [None]
  - LUNG INFECTION [None]
